FAERS Safety Report 6674174-6 (Version None)
Quarter: 2010Q2

REPORT INFORMATION
  Report Type: 
  Country: None (occurrence: None)
  Receive Date: 20100409
  Receipt Date: 20100330
  Transmission Date: 20101027
  Serious: No
  Sender: FDA-Public Use
  Company Number: US-B.I. PHARMACEUTICALS,INC./RIDGEFIELD-2010-BP-03694BP

PATIENT
  Age: 76 Year
  Sex: Female

DRUGS (10)
  1. SPIRIVA [Suspect]
     Indication: PULMONARY FUNCTION TEST DECREASED
     Dosage: 18 MCG
     Route: 055
     Dates: start: 20100315
  2. TENORMIN [Concomitant]
     Indication: TREMOR
  3. EVISTA [Concomitant]
     Indication: OSTEOPOROSIS
  4. LORAZEPAM [Concomitant]
     Indication: ANXIETY
  5. DARVOCET [Concomitant]
     Indication: BACK PAIN
  6. LIPITOR [Concomitant]
     Indication: BLOOD CHOLESTEROL INCREASED
  7. AMLODIPINE [Concomitant]
     Indication: HYPERTENSION
  8. PROTONIX [Concomitant]
     Indication: GASTROOESOPHAGEAL REFLUX DISEASE
  9. HYZAAR [Concomitant]
     Indication: HYPERTENSION
  10. TRICOR [Concomitant]
     Indication: BLOOD CHOLESTEROL INCREASED

REACTIONS (2)
  - DRUG INEFFECTIVE [None]
  - DYSGEUSIA [None]
